FAERS Safety Report 7693694-9 (Version None)
Quarter: 2011Q3

REPORT INFORMATION
  Report Type: 
  Country: None (occurrence: None)
  Receive Date: 20110819
  Receipt Date: 20110810
  Transmission Date: 20111222
  Serious: Yes (Other)
  Sender: FDA-Public Use
  Company Number: DE-JNJFOC-20110710622

PATIENT
  Sex: Female
  Weight: 54 kg

DRUGS (7)
  1. XARELTO [Suspect]
     Indication: HIP ARTHROPLASTY
     Route: 065
     Dates: start: 20110401
  2. XARELTO [Suspect]
     Indication: THROMBOSIS PROPHYLAXIS
     Route: 065
     Dates: start: 20110401
  3. NOVAMINSULFON [Concomitant]
  4. CALCIUM CARBONATE [Concomitant]
  5. ENOXAPARIN SODIUM [Concomitant]
  6. VITAMIN A [Concomitant]
  7. VITAMIN D [Concomitant]

REACTIONS (3)
  - DEEP VEIN THROMBOSIS [None]
  - ECZEMA [None]
  - SKIN DISORDER [None]
